FAERS Safety Report 7288951-4 (Version None)
Quarter: 2011Q1

REPORT INFORMATION
  Report Type: 
  Country: None (occurrence: None)
  Receive Date: 20110211
  Receipt Date: 20110207
  Transmission Date: 20110831
  Serious: No
  Sender: FDA-Public Use
  Company Number: US-ROXANE LABORATORIES, INC.-2011-RO-00083RO

PATIENT
  Sex: Female

DRUGS (3)
  1. MORPHINE [Suspect]
     Indication: PAIN
  2. MORPHINE SULFATE [Suspect]
     Indication: PAIN
  3. FENTANYL [Suspect]
     Indication: PAIN
     Route: 062

REACTIONS (1)
  - DRUG INEFFECTIVE [None]
